FAERS Safety Report 5775807-9 (Version None)
Quarter: 2008Q2

REPORT INFORMATION
  Report Type: 
  Country: None (occurrence: None)
  Receive Date: 20080617
  Receipt Date: 20080529
  Transmission Date: 20081010
  Serious: No
  Sender: FDA-Public Use
  Company Number: US-BOEHRINGER INGELHEIM GMBH, GERMANY-2008-BP-08447BP

PATIENT
  Sex: Female

DRUGS (10)
  1. MIRAPEX [Suspect]
     Indication: PARKINSON'S DISEASE
     Dates: start: 20060501
  2. MIRAPEX [Suspect]
     Dates: start: 20080424, end: 20080515
  3. NEURONTIN [Concomitant]
  4. SINEMET [Concomitant]
     Indication: PARKINSON'S DISEASE
  5. CITOLOPRIM [Concomitant]
     Indication: ANXIETY
  6. K-CHLORIDE [Concomitant]
  7. PROPRANOLOL [Concomitant]
  8. METFORMIN [Concomitant]
  9. PRILOSEC [Concomitant]
  10. CENTRUM [Concomitant]

REACTIONS (6)
  - CONFUSIONAL STATE [None]
  - DRUG INEFFECTIVE [None]
  - HALLUCINATION [None]
  - HYPOKINESIA [None]
  - MUSCULAR WEAKNESS [None]
  - SOMNOLENCE [None]
